FAERS Safety Report 9377031 (Version 1)
Quarter: 2013Q3

REPORT INFORMATION
  Report Type: Spontaneous
  Country: US (occurrence: US)
  Receive Date: 20130701
  Receipt Date: 20130701
  Transmission Date: 20140515
  Serious: Yes (Hospitalization, Other)
  Sender: FDA-Public Use
  Company Number: US-PFIZER INC-2013192014

PATIENT
  Age: 61 Year
  Sex: Female

DRUGS (14)
  1. CHANTIX [Suspect]
     Indication: SMOKING CESSATION THERAPY
     Dosage: UNK
     Dates: start: 201304
  2. HUMIRA [Suspect]
     Indication: PSORIASIS
     Dosage: 40 MG, 1 IN 2 WK
     Dates: start: 201202
  3. ZANAFLEX [Concomitant]
     Indication: MUSCLE SPASMS
     Dosage: 8 MG IN AM, 4 MG IN AFTERNOON, 4 MG AT NIGHT
  4. ULTRAM [Concomitant]
     Indication: BACK PAIN
     Dosage: 300 MG (100 MG, 3 IN 1 D)
  5. NEURONTIN [Concomitant]
     Indication: BACK PAIN
     Dosage: 300 MG, (100 MG, 3 IN 1 D)
  6. BACLOFEN [Concomitant]
     Indication: BACK PAIN
     Dosage: 20 MG, (10 MG, 2 IN 1 D)
  7. BACLOFEN [Concomitant]
     Indication: MUSCLE SPASMS
  8. ELAVIL [Concomitant]
     Indication: INSOMNIA
     Dosage: IN THE EVENING (20 MG, 1 IN 1 D)
  9. REMERON [Concomitant]
     Indication: SLEEP DISORDER
     Dosage: AT NIGHT (30 MG, 1 IN 1 D)
  10. REMERON [Concomitant]
     Indication: PAIN
  11. LIPITOR [Concomitant]
     Indication: BLOOD CHOLESTEROL
     Dosage: 40 MG (40 MG, 1 IN 1 D)
  12. FOLIC ACID [Concomitant]
     Indication: BLOOD CHOLESTEROL
     Dosage: 1 MG (1 MG, 1 IN 1 D)
  13. PERCOCET [Concomitant]
     Indication: BACK PAIN
     Dosage: 10 MG, UNK
  14. TRIAMCINOLONE [Concomitant]
     Indication: PSORIASIS
     Dosage: AT NIGHT (1 DOSAGE FORMS, 1 IN 1 D)
     Route: 061

REACTIONS (4)
  - Pneumonia [Unknown]
  - Feeling abnormal [Unknown]
  - Sleep disorder [Unknown]
  - Diarrhoea [Unknown]
